FAERS Safety Report 15080217 (Version 1)
Quarter: 2018Q2

REPORT INFORMATION
  Report Type: Report from Study
  Country: US (occurrence: US)
  Receive Date: 20180627
  Receipt Date: 20180627
  Transmission Date: 20180711
  Serious: Yes (Hospitalization)
  Sender: FDA-Public Use
  Company Number: US-BAXTER-2018BAX017740

PATIENT
  Age: 48 Year
  Sex: Male

DRUGS (15)
  1. MESNA FOR INJECTION 1 GRAM [Suspect]
     Active Substance: MESNA
     Indication: PRODUCT USED FOR UNKNOWN INDICATION
     Dosage: REGIMEN A: OVER 24 HOURS FOR 3 DAYS ON DAYS 1-3
     Route: 042
  2. DEXAMETHASONE. [Suspect]
     Active Substance: DEXAMETHASONE
     Indication: PRODUCT USED FOR UNKNOWN INDICATION
     Dosage: REGIMEN A: FOR 4 DAYS ON DAYS 1-4 AND DAYS 11-14
     Route: 042
  3. RITUXIMAB. [Suspect]
     Active Substance: RITUXIMAB
     Dosage: REGIMEN B: ON DAY 2 AND DAY 8 OF CYCLES 2 AND 4
     Route: 042
  4. PEGFILGRASTIM [Suspect]
     Active Substance: PEGFILGRASTIM
     Indication: GRANULOCYTES ABNORMAL
     Dosage: REGIMEN A: ON DAY 4
     Route: 058
  5. PEGFILGRASTIM [Suspect]
     Active Substance: PEGFILGRASTIM
     Dosage: REGIMEN B: ON DAY 4
     Route: 058
  6. INOTUZUMAB OZOGAMICIN [Suspect]
     Active Substance: INOTUZUMAB OZOGAMICIN
     Indication: ACUTE LYMPHOCYTIC LEUKAEMIA
     Dosage: REGIMEN A: OVER 1 HOUR ON DAY 3
     Route: 042
     Dates: start: 20180221
  7. RITUXIMAB. [Suspect]
     Active Substance: RITUXIMAB
     Indication: PRODUCT USED FOR UNKNOWN INDICATION
     Dosage: REGIMEN A: ON DAY 2 AND DAY 8
     Route: 042
  8. ARA-C [Suspect]
     Active Substance: CYTARABINE
     Indication: PRODUCT USED FOR UNKNOWN INDICATION
     Dosage: REGIMEN A: OVER 3 HOURS TWICE A DAY X 4 DOSES ON DAYS 2 AND 3
     Route: 042
  9. ARA-C [Suspect]
     Active Substance: CYTARABINE
     Dosage: REGIMEN B : OVER 3 HOURS TWICE A DAY X 4 DOSES ON DAYS 2 AND 3
     Route: 042
  10. METHOTREXATE SODIUM. [Suspect]
     Active Substance: METHOTREXATE SODIUM
     Indication: PRODUCT USED FOR UNKNOWN INDICATION
     Dosage: REGIMEN B: OVER 2 HOURS ON DAY 1
     Route: 042
  11. CYCLOPHOSPHAMIDE FOR INJECTION, USP [Suspect]
     Active Substance: CYCLOPHOSPHAMIDE
     Indication: PRODUCT USED FOR UNKNOWN INDICATION
     Dosage: REGIMEN A : OVER THREE HOURS, ON DAYS 1-3
     Route: 042
  12. INOTUZUMAB OZOGAMICIN [Suspect]
     Active Substance: INOTUZUMAB OZOGAMICIN
     Dosage: REGIMEN B: ON DAY 2 OR 3, CYCLE 2 AND 4 ONLY
     Route: 042
  13. INOTUZUMAB OZOGAMICIN [Suspect]
     Active Substance: INOTUZUMAB OZOGAMICIN
     Dosage: LAST DOSE BEFORE THE START OF THE EVENT
     Route: 042
     Dates: start: 20180401, end: 20180401
  14. VINCRISTINE SULFATE. [Suspect]
     Active Substance: VINCRISTINE SULFATE
     Indication: PRODUCT USED FOR UNKNOWN INDICATION
     Dosage: REGIMEN A: ON DAY 1 AND DAY 8
     Route: 042
  15. METHOTREXATE SODIUM. [Suspect]
     Active Substance: METHOTREXATE SODIUM
     Dosage: REGIMEN B: CONTINUOUS INFUSION OVER 22 HOURS ON DAY 1
     Route: 042

REACTIONS (1)
  - Mental status changes [Recovered/Resolved]

NARRATIVE: CASE EVENT DATE: 20180514
